FAERS Safety Report 25287691 (Version 1)
Quarter: 2025Q2

REPORT INFORMATION
  Report Type: Spontaneous
  Country: US (occurrence: US)
  Receive Date: 20250509
  Receipt Date: 20250509
  Transmission Date: 20250717
  Serious: Yes (Other)
  Sender: PFIZER
  Company Number: US-PFIZER INC-202500094024

PATIENT
  Age: 57 Year
  Sex: Female

DRUGS (1)
  1. ESTRING [Suspect]
     Active Substance: ESTRADIOL
     Dates: start: 20250503, end: 20250503

REACTIONS (4)
  - Nausea [Not Recovered/Not Resolved]
  - Vaginal disorder [Not Recovered/Not Resolved]
  - Abdominal distension [Not Recovered/Not Resolved]
  - Vulvovaginal discomfort [Unknown]

NARRATIVE: CASE EVENT DATE: 20250503
